FAERS Safety Report 4928650-4 (Version None)
Quarter: 2006Q1

REPORT INFORMATION
  Report Type: 
  Country: None (occurrence: None)
  Receive Date: 20060227
  Receipt Date: 20060227
  Transmission Date: 20060701
  Serious: Yes (Life-Threatening, Hospitalization)
  Sender: FDA-Public Use
  Company Number: None

PATIENT
  Age: 85 Year
  Sex: Female
  Weight: 57.6068 kg

DRUGS (5)
  1. LEVOFLOXACIN [Suspect]
     Indication: PNEUMONIA
     Dosage: 750MG  DAILY  IV
     Route: 042
     Dates: start: 20050125, end: 20050126
  2. THEOPHYLLINE [Concomitant]
  3. LORAZEPAM [Concomitant]
  4. COMBIVENT [Concomitant]
  5. DILTIAZEM HCL [Concomitant]

REACTIONS (4)
  - INJECTION SITE PHLEBITIS [None]
  - PRURITUS [None]
  - RASH GENERALISED [None]
  - SWELLING FACE [None]
